FAERS Safety Report 24312148 (Version 1)
Quarter: 2024Q3

REPORT INFORMATION
  Report Type: Spontaneous
  Country: OM (occurrence: OM)
  Receive Date: 20240912
  Receipt Date: 20240912
  Transmission Date: 20241016
  Serious: Yes (Other)
  Sender: Carnegie Pharmaceuticals
  Company Number: OM-CARNEGIE-000029

PATIENT
  Age: 62 Year
  Sex: Female

DRUGS (1)
  1. LETROZOLE [Suspect]
     Active Substance: LETROZOLE
     Indication: Invasive ductal breast carcinoma
     Route: 065
     Dates: start: 201607, end: 202101

REACTIONS (2)
  - Cystoid macular oedema [Recovered/Resolved]
  - Cataract nuclear [Unknown]
